FAERS Safety Report 7599742-9 (Version None)
Quarter: 2011Q3

REPORT INFORMATION
  Report Type: 
  Country: None (occurrence: None)
  Receive Date: 20110711
  Receipt Date: 20110706
  Transmission Date: 20111222
  Serious: Yes (Hospitalization)
  Sender: FDA-Public Use
  Company Number: US-AMGEN-USASP2011034339

PATIENT
  Sex: Female

DRUGS (2)
  1. CYCLOSPORINE [Concomitant]
  2. NPLATE [Suspect]
     Indication: IDIOPATHIC THROMBOCYTOPENIC PURPURA
     Dosage: UNK UNK, QWK
     Dates: start: 20100929, end: 20101020

REACTIONS (4)
  - PLATELET COUNT DECREASED [None]
  - HAEMORRHAGE [None]
  - HOSPITALISATION [None]
  - CHRONIC MYELOMONOCYTIC LEUKAEMIA [None]
